FAERS Safety Report 8715227 (Version 2)
Quarter: 2012Q4

REPORT INFORMATION
  Report Type: 
  Country: US (occurrence: None)
  Receive Date: 20120725
  Receipt Date: 20120814
  Transmission Date: 20130627
  Serious: Yes (Other)
  Sender: FDA-Public Use
  Company Number: ADR-2012-01333

PATIENT
  Sex: Male

DRUGS (2)
  1. LIORESAL [Suspect]
     Indication: MUSCLE SPASTICITY
  2. LIORESAL [Suspect]
     Indication: CEREBRAL PALSY

REACTIONS (5)
  - Device occlusion [None]
  - No therapeutic response [None]
  - Muscle spasms [None]
  - Device deposit issue [None]
  - Medication dilution [None]
